FAERS Safety Report 8517171-8 (Version None)
Quarter: 2012Q3

REPORT INFORMATION
  Report Type: 
  Country: None (occurrence: None)
  Receive Date: 20120706
  Receipt Date: 20120625
  Transmission Date: 20120928
  Serious: Yes (Death, Other)
  Sender: FDA-Public Use
  Company Number: 2012P1046770

PATIENT

DRUGS (2)
  1. IRINOTECAN HCL [Suspect]
     Indication: COLORECTAL CANCER METASTATIC
     Dosage: 180 MG/M^2;QOW, IV
     Route: 042
  2. CETUXIMAB (NO PREF. NAME) [Suspect]
     Indication: COLORECTAL CANCER METASTATIC
     Dosage: 500 MG/M^2;QOW, IV
     Route: 042

REACTIONS (2)
  - ACUTE RESPIRATORY DISTRESS SYNDROME [None]
  - INTESTINAL PERFORATION [None]
